FAERS Safety Report 4702154-6 (Version None)
Quarter: 2005Q2

REPORT INFORMATION
  Report Type: 
  Country: None (occurrence: None)
  Receive Date: 20050624
  Receipt Date: 20050224
  Transmission Date: 20051028
  Serious: No
  Sender: FDA-Public Use
  Company Number: 2005BI004326

PATIENT
  Age: 49 Year
  Sex: Female

DRUGS (11)
  1. NATALIZUMAB [Suspect]
     Indication: MULTIPLE SCLEROSIS
     Dosage: 300 MG;QM;IV
     Route: 042
     Dates: start: 20050214
  2. ALLEGRA [Concomitant]
  3. BACLOFEN [Concomitant]
  4. CLONOPIN [Concomitant]
  5. VASOTEC [Concomitant]
  6. CELEXA [Concomitant]
  7. LIPITOR [Concomitant]
  8. HUMALOG [Concomitant]
  9. LANTUS [Concomitant]
  10. CENTRUM [Concomitant]
  11. TYLENOL [Concomitant]

REACTIONS (1)
  - HEADACHE [None]
